FAERS Safety Report 6477848-5 (Version None)
Quarter: 2009Q4

REPORT INFORMATION
  Report Type: 
  Country: None (occurrence: None)
  Receive Date: 20091207
  Receipt Date: 20091125
  Transmission Date: 20100525
  Serious: Yes (Hospitalization, Other)
  Sender: FDA-Public Use
  Company Number: CH-ELI_LILLY_AND_COMPANY-CH200911006785

PATIENT
  Age: 73 Year
  Sex: Female

DRUGS (17)
  1. ZYPREXA [Suspect]
     Dosage: 10 MG, DAILY (1/D)
     Route: 048
     Dates: start: 20090622, end: 20090819
  2. ZYPREXA [Suspect]
     Dosage: 5 MG, DAILY (1/D)
     Route: 048
     Dates: start: 20090820, end: 20090821
  3. ZYPREXA [Suspect]
     Dosage: 2.5 MG, DAILY (1/D)
     Route: 048
     Dates: start: 20090821
  4. BUSPAR [Concomitant]
     Dosage: 15 MG, DAILY (1/D)
     Route: 048
     Dates: start: 20090727, end: 20090728
  5. BUSPAR [Concomitant]
     Dosage: 20 MG, DAILY (1/D)
     Route: 048
     Dates: start: 20090729, end: 20090802
  6. BUSPAR [Concomitant]
     Dosage: 25 MG, DAILY (1/D)
     Route: 048
     Dates: start: 20090803, end: 20090814
  7. BUSPAR [Concomitant]
     Dosage: 30 MG, DAILY (1/D)
     Route: 048
     Dates: start: 20090815, end: 20090820
  8. BUSPAR [Concomitant]
     Dosage: 20 MG, DAILY (1/D)
     Route: 048
     Dates: start: 20090821, end: 20090823
  9. BUSPAR [Concomitant]
     Dosage: 10 MG, DAILY (1/D)
     Route: 048
     Dates: start: 20090824, end: 20090101
  10. CALCIMAGON [Concomitant]
     Dosage: 1 D/F, DAILY (1/D)
     Route: 065
     Dates: start: 20090427
  11. DUPHALAC [Concomitant]
     Dosage: 15 ML, DAILY (1/D)
     Route: 065
     Dates: start: 20090331
  12. REMERON [Concomitant]
     Dosage: 30 MG, DAILY (1/D)
     Route: 048
     Dates: start: 20090325, end: 20090820
  13. REMERON [Concomitant]
     Dosage: 45 MG, DAILY (1/D)
     Route: 065
     Dates: start: 20090821
  14. NORMISON [Concomitant]
     Dosage: 20 MG, DAILY (1/D)
     Route: 048
     Dates: start: 20090320
  15. INDOPHTAL [Concomitant]
     Dosage: 1 GTT, DAILY (1/D)
     Route: 065
     Dates: start: 20090814, end: 20090827
  16. TOBRADEX [Concomitant]
     Dosage: 2 GTT, DAILY (1/D)
     Route: 065
     Dates: start: 20090814
  17. ACULAR [Concomitant]
     Dosage: 2 GTT, DAILY (1/D)
     Route: 065
     Dates: start: 20090815

REACTIONS (5)
  - ASTHENIA [None]
  - DYSARTHRIA [None]
  - GAIT DISTURBANCE [None]
  - LOSS OF CONSCIOUSNESS [None]
  - PLEUROTHOTONUS [None]
